FAERS Safety Report 18684288 (Version 3)
Quarter: 2022Q2

REPORT INFORMATION
  Report Type: Spontaneous
  Country: US (occurrence: US)
  Receive Date: 20201230
  Receipt Date: 20220504
  Transmission Date: 20220721
  Serious: No
  Sender: FDA-Public Use
  Company Number: US-PFIZER INC-2020423691

PATIENT
  Age: 82 Year
  Sex: Male

DRUGS (5)
  1. LYRICA [Suspect]
     Active Substance: PREGABALIN
     Indication: Neuropathy peripheral
     Dosage: 100 MG, TWICE A DAY
  2. LYRICA [Suspect]
     Active Substance: PREGABALIN
     Indication: Pain in extremity
  3. LYRICA [Suspect]
     Active Substance: PREGABALIN
     Indication: Neuralgia
  4. GABAPENTIN [Suspect]
     Active Substance: GABAPENTIN
     Indication: Pain
     Dosage: UNK
  5. GABAPENTIN [Suspect]
     Active Substance: GABAPENTIN
     Indication: Neuralgia

REACTIONS (1)
  - Therapeutic product effect incomplete [Unknown]
